FAERS Safety Report 13420084 (Version 1)
Quarter: 2017Q2

REPORT INFORMATION
  Report Type: Spontaneous
  Country: US (occurrence: US)
  Receive Date: 20170407
  Receipt Date: 20170407
  Transmission Date: 20170830
  Serious: No
  Sender: FDA-Public Use
  Company Number: US-JNJFOC-20170320215

PATIENT
  Age: 24 Year
  Sex: Female

DRUGS (3)
  1. IBUPROFEN. [Concomitant]
     Active Substance: IBUPROFEN
     Route: 065
  2. ADVIL [Concomitant]
     Active Substance: IBUPROFEN
     Route: 065
  3. STELARA [Suspect]
     Active Substance: USTEKINUMAB
     Indication: PSORIASIS
     Dosage: WEEK 0 ON DAY ONE AND THEN 45 MG IN 4 WEEKS AND THEN 45 MG EVERY 12 WEEKS.
     Route: 058

REACTIONS (1)
  - Therapy cessation [Unknown]
